FAERS Safety Report 7933394-0 (Version None)
Quarter: 2011Q4

REPORT INFORMATION
  Report Type: 
  Country: None (occurrence: None)
  Receive Date: 20111122
  Receipt Date: 20111122
  Transmission Date: 20120403
  Serious: No
  Sender: FDA-Public Use
  Company Number: None

PATIENT
  Age: 58 Year
  Sex: Female
  Weight: 56.699 kg

DRUGS (1)
  1. BOTOX [Suspect]

REACTIONS (2)
  - MUSCULAR WEAKNESS [None]
  - MOVEMENT DISORDER [None]
